FAERS Safety Report 7374301-1 (Version None)
Quarter: 2011Q1

REPORT INFORMATION
  Report Type: 
  Country: None (occurrence: None)
  Receive Date: 20110325
  Receipt Date: 20110228
  Transmission Date: 20110831
  Serious: No
  Sender: FDA-Public Use
  Company Number: US-B.I. PHARMACEUTICALS,INC./RIDGEFIELD-2011-BP-05663BP

PATIENT
  Sex: Male

DRUGS (10)
  1. FUROSEMIDE [Concomitant]
     Indication: FLUID RETENTION
  2. LEVOTHYROXINE SODIUM [Concomitant]
     Indication: HYPOTHYROIDISM
  3. MULTIVITAMIN [Concomitant]
     Indication: PROPHYLAXIS
  4. ZOLPIDEM [Concomitant]
     Indication: SLEEP DISORDER
  5. PRADAXA [Suspect]
     Indication: ATRIAL FIBRILLATION
     Dosage: 300 MG
     Route: 048
     Dates: start: 20110201
  6. OMEPRAZOLE [Concomitant]
     Indication: NERVOUSNESS
  7. ZANTAC [Concomitant]
     Indication: NERVOUSNESS
  8. CARVEDILOL [Concomitant]
     Indication: CARDIAC DISORDER
  9. CPAP MACHINE [Concomitant]
     Indication: SLEEP APNOEA SYNDROME
  10. POTASSIUM CHLORIDE [Concomitant]
     Indication: SUPPLEMENTATION THERAPY

REACTIONS (2)
  - SENSATION OF FOREIGN BODY [None]
  - MELAENA [None]
